FAERS Safety Report 9453069 (Version 2)
Quarter: 2013Q3

REPORT INFORMATION
  Report Type: Spontaneous
  Country: US (occurrence: US)
  Receive Date: 20130812
  Receipt Date: 20130826
  Transmission Date: 20140515
  Serious: Yes (Hospitalization)
  Sender: FDA-Public Use
  Company Number: US-SANOFI-AVENTIS-2013SA080081

PATIENT
  Age: 81 Year
  Sex: Male

DRUGS (4)
  1. LANTUS SOLOSTAR [Suspect]
     Indication: TYPE 2 DIABETES MELLITUS
     Dosage: 28-36 UNITS DOSE:36 UNIT(S)
     Route: 058
  2. NOVOLOG [Suspect]
     Route: 065
  3. COUMADIN [Suspect]
     Route: 065
  4. SOLOSTAR [Concomitant]
     Indication: TYPE 2 DIABETES MELLITUS

REACTIONS (15)
  - Cardiac disorder [Unknown]
  - Ill-defined disorder [Unknown]
  - Fall [Unknown]
  - Head injury [Unknown]
  - Malaise [Not Recovered/Not Resolved]
  - Walking aid user [Not Recovered/Not Resolved]
  - Visual impairment [Unknown]
  - Weight decreased [Not Recovered/Not Resolved]
  - Abnormal behaviour [Not Recovered/Not Resolved]
  - Rash [Unknown]
  - Hypoglycaemia [Unknown]
  - Loss of consciousness [Unknown]
  - Blood glucose increased [Not Recovered/Not Resolved]
  - Blood glucose decreased [Unknown]
  - Incorrect dose administered [Unknown]
